FAERS Safety Report 5404033-8 (Version None)
Quarter: 2007Q3

REPORT INFORMATION
  Report Type: 
  Country: None (occurrence: None)
  Receive Date: 20070730
  Receipt Date: 20070715
  Transmission Date: 20080115
  Serious: Yes (Life-Threatening, Hospitalization)
  Sender: FDA-Public Use
  Company Number: VNL_00614_2007

PATIENT
  Sex: Male

DRUGS (13)
  1. APO-GO (APO-GO - APOMORPHINE HYDROCHLORIDE) (NOT SPECIFIED) [Suspect]
     Indication: PARKINSONISM
     Dosage: 60 - 100 MG/DAY FOR 4 WEEKS 2 DAYS SUBCUTANEOUS
     Route: 058
     Dates: start: 20070510, end: 20070608
  2. APO-GO (APO-GO - APOMORPHINE HYDROCHLORIDE) (NOT SPECIFIED) [Suspect]
     Indication: PARKINSONISM
     Dosage: DF FOR 4 DAYS SUBCUTANEOUS
     Route: 058
     Dates: start: 20070608, end: 20070611
  3. CIPROBAY /00697201/ (CIPROBAY - CIPROFLOXACIN) (NOT SPECIFIED) [Suspect]
     Indication: INFLAMMATION
     Dosage: 500 MG BID ORAL
     Route: 048
     Dates: start: 20070522, end: 20070529
  4. UNACID /00917901/ (UNACID - SULTAMICILLIN (AMPICILLIN + SULBACTAM) [Suspect]
     Indication: INFLAMMATION
     Dosage: 375 MG BID ORAL
     Route: 048
     Dates: start: 20070515, end: 20070521
  5. PK-MERZ [Concomitant]
  6. STALEVO 100 [Concomitant]
  7. RASAGILINE [Concomitant]
  8. VITAMIN B12 /00056201/ [Concomitant]
  9. DIGITOXIN TAB [Concomitant]
  10. ATACAND [Concomitant]
  11. LISINOPRIL [Concomitant]
  12. TOREM /01036501/ [Concomitant]
  13. ROCEPHIN /00672201/ [Concomitant]

REACTIONS (11)
  - DIARRHOEA [None]
  - GENERAL PHYSICAL HEALTH DETERIORATION [None]
  - HAEMATURIA [None]
  - INFLAMMATION [None]
  - INFUSION SITE INFLAMMATION [None]
  - MUCOSAL HAEMORRHAGE [None]
  - NO THERAPEUTIC RESPONSE [None]
  - PETECHIAE [None]
  - ROTAVIRUS TEST POSITIVE [None]
  - THROMBOCYTOPENIA [None]
  - VIRUS STOOL TEST POSITIVE [None]
